FAERS Safety Report 20757911 (Version 1)
Quarter: 2022Q2

REPORT INFORMATION
  Report Type: Spontaneous
  Country: US (occurrence: US)
  Receive Date: 20220427
  Receipt Date: 20220427
  Transmission Date: 20220720
  Serious: No
  Sender: FDA-Public Use
  Company Number: US-GSKCCFUS-Case-01357617_AE-78617

PATIENT
  Sex: Female

DRUGS (1)
  1. TRELEGY ELLIPTA [Suspect]
     Active Substance: FLUTICASONE FUROATE\UMECLIDINIUM BROMIDE\VILANTEROL TRIFENATATE
     Indication: Chronic obstructive pulmonary disease
     Dosage: 100 MCG/MG, 1D
     Route: 055
     Dates: start: 20220201

REACTIONS (4)
  - Lung disorder [Unknown]
  - Underdose [Unknown]
  - Expired product administered [Unknown]
  - Inappropriate schedule of product administration [Unknown]
